FAERS Safety Report 5148678-1 (Version None)
Quarter: 2006Q4

REPORT INFORMATION
  Report Type: 
  Country: None (occurrence: None)
  Receive Date: 20061103
  Receipt Date: 20061023
  Transmission Date: 20070319
  Serious: Yes (Hospitalization)
  Sender: FDA-Public Use
  Company Number: HQWYE042108JUN06

PATIENT
  Age: 58 Year
  Sex: Male

DRUGS (14)
  1. RAPAMUNE [Suspect]
     Indication: PROPHYLAXIS AGAINST TRANSPLANT REJECTION
     Dosage: 8 MG 1X PER 1 DAY
     Route: 048
     Dates: start: 20060416, end: 20060609
  2. MYCOPHENOLATE MOFETIL [Concomitant]
  3. PREDNISOLONE [Concomitant]
  4. ACETAMINOPHEN [Concomitant]
  5. FUROSEMIDE [Concomitant]
  6. ATORVASTATIN CALCIUM [Concomitant]
  7. ALFACALCIDOL (ALFACALCIDOL) [Concomitant]
  8. SODIUM BICARBONATE IN PLASTIC CONTAINER [Concomitant]
  9. NIFEDIPINE [Concomitant]
  10. SENNA (SENNA) [Concomitant]
  11. LANSOPRAZOLE [Concomitant]
  12. COTRIMOXAZOL (SULFMETHOXAZOLE/TRIMETHOPRIM) [Concomitant]
  13. DOXAZOSIN (DOXAZOSIN) [Concomitant]
  14. AQUEOUS (EMULSIFYING WAX/PARAFFIN, LIQUID/WHITE SOFT PARAFFIN) [Concomitant]

REACTIONS (7)
  - DEHYDRATION [None]
  - DRUG INEFFECTIVE [None]
  - HYPERTENSION [None]
  - INFECTION [None]
  - KIDNEY TRANSPLANT REJECTION [None]
  - OEDEMA PERIPHERAL [None]
  - PITTING OEDEMA [None]
